FAERS Safety Report 19834923 (Version 1)
Quarter: 2021Q3

REPORT INFORMATION
  Report Type: Spontaneous
  Country: AM (occurrence: AM)
  Receive Date: 20210915
  Receipt Date: 20210915
  Transmission Date: 20211014
  Serious: Yes (Death, Hospitalization, Other)
  Sender: FDA-Public Use
  Company Number: AM-GILEAD-2021-0548056

PATIENT
  Age: 34 Year
  Sex: Male

DRUGS (20)
  1. LAMIVUDINE. [Concomitant]
     Active Substance: LAMIVUDINE
     Indication: ANTIRETROVIRAL THERAPY
     Dosage: UNK
     Dates: start: 20161201
  2. LORAZEPAM. [Concomitant]
     Active Substance: LORAZEPAM
     Indication: PRODUCT USED FOR UNKNOWN INDICATION
     Route: 065
  3. NEVIRAPINE. [Concomitant]
     Active Substance: NEVIRAPINE
     Indication: ANTIRETROVIRAL THERAPY
     Dosage: UNK
     Dates: start: 20161201
  4. IMIPENEM [Suspect]
     Active Substance: IMIPENEM
     Indication: TUBERCULOSIS
     Dosage: 2000 QD
     Route: 065
     Dates: start: 20180514, end: 20181003
  5. VITAMIN B6 [Concomitant]
     Active Substance: PYRIDOXINE HYDROCHLORIDE
     Indication: TUBERCULOSIS
     Dosage: 150 MG, UNK
     Route: 065
  6. FLUCONAZOLE. [Concomitant]
     Active Substance: FLUCONAZOLE
     Indication: PRODUCT USED FOR UNKNOWN INDICATION
     Route: 065
  7. CLOFAZIMINE [Suspect]
     Active Substance: CLOFAZIMINE
     Indication: TUBERCULOSIS
     Dosage: 200/100 (UNITS NOT PROVIDED), QD
     Route: 065
     Dates: start: 20180514
  8. PROTIONAMIDE [Suspect]
     Active Substance: PROTIONAMIDE
     Indication: TUBERCULOSIS
     Dosage: 750 UNK, QD
     Route: 065
     Dates: start: 20180514
  9. IMIPENEM+CILASTATIN [Suspect]
     Active Substance: CILASTATIN SODIUM\IMIPENEM
     Indication: TUBERCULOSIS
     Dosage: 2000 (UNITS NOT PROVIDED), QD
     Route: 065
     Dates: start: 20180514, end: 20181003
  10. SENADEXIN [SENNOSIDE A+B] [Concomitant]
     Indication: PRODUCT USED FOR UNKNOWN INDICATION
     Route: 065
  11. OMEPRAZOLE. [Concomitant]
     Active Substance: OMEPRAZOLE
     Indication: PRODUCT USED FOR UNKNOWN INDICATION
     Route: 065
  12. DACLATASVIR. [Suspect]
     Active Substance: DACLATASVIR
     Indication: HEPATITIS C
     Dosage: 90 (UNITS NOT PROVIDED), QD
     Route: 065
     Dates: start: 20180703, end: 20180924
  13. MOXIFLOXACIN. [Suspect]
     Active Substance: MOXIFLOXACIN
     Indication: TUBERCULOSIS
     Dosage: 400 UNK, QD
     Route: 065
     Dates: start: 20180514
  14. SOFOSBUVIR [Suspect]
     Active Substance: SOFOSBUVIR
     Indication: HEPATITIS C
     Dosage: 400 MG, QD
     Route: 065
     Dates: start: 20180703, end: 20180924
  15. AMOXICILLIN + CLAV. POTASSIUM [Suspect]
     Active Substance: AMOXICILLIN\CLAVULANATE POTASSIUM
     Indication: TUBERCULOSIS
     Dosage: 2000 UNK, QD
     Route: 065
     Dates: start: 20180514, end: 20181003
  16. DELAMANID [Suspect]
     Active Substance: DELAMANID
     Indication: TUBERCULOSIS
     Dosage: 200 UNK, QD
     Route: 065
     Dates: start: 20180514
  17. ESFOLEN [Concomitant]
     Indication: PRODUCT USED FOR UNKNOWN INDICATION
     Route: 065
  18. GABAPENTINUM [Concomitant]
     Indication: PRODUCT USED FOR UNKNOWN INDICATION
     Route: 065
  19. METOCLOPRAMIDE. [Concomitant]
     Active Substance: METOCLOPRAMIDE
     Indication: PRODUCT USED FOR UNKNOWN INDICATION
     Route: 065
  20. ABACAVIR. [Concomitant]
     Active Substance: ABACAVIR
     Indication: TUBERCULOSIS
     Dosage: UNK
     Route: 065
     Dates: start: 20161201

REACTIONS (26)
  - Hypoaesthesia [Unknown]
  - Alanine aminotransferase increased [Unknown]
  - Aspartate aminotransferase increased [Unknown]
  - Gamma-glutamyltransferase increased [Unknown]
  - Gastritis [Not Recovered/Not Resolved]
  - Duodenitis [Not Recovered/Not Resolved]
  - Paraesthesia [Unknown]
  - HIV infection [Fatal]
  - Cachexia [Unknown]
  - Oesophagitis [Not Recovered/Not Resolved]
  - Oral candidiasis [Unknown]
  - Malaise [Unknown]
  - Hepatomegaly [Unknown]
  - Platelet count decreased [Unknown]
  - Blindness [Unknown]
  - Odynophagia [Unknown]
  - Abdominal pain upper [Unknown]
  - Blood pressure decreased [Unknown]
  - Weight decreased [Unknown]
  - Refusal of treatment by patient [Unknown]
  - Pain in extremity [Unknown]
  - Eating disorder [Unknown]
  - Iridocyclitis [Unknown]
  - Neuropathy peripheral [Unknown]
  - Vomiting [Unknown]
  - Nausea [Unknown]

NARRATIVE: CASE EVENT DATE: 20180920
